FAERS Safety Report 21721572 (Version 1)
Quarter: 2022Q4

REPORT INFORMATION
  Report Type: Spontaneous
  Country: US (occurrence: None)
  Receive Date: 20221212
  Receipt Date: 20221212
  Transmission Date: 20230113
  Serious: Yes (Hospitalization)
  Sender: FDA-Public Use
  Company Number: None

PATIENT
  Sex: Female
  Weight: 51.21 kg

DRUGS (10)
  1. MAVYRET [Suspect]
     Active Substance: GLECAPREVIR\PIBRENTASVIR
  2. ONDANSETRON [Concomitant]
  3. PANTOPRAZOLE [Concomitant]
  4. POSCANAZOLE [Concomitant]
  5. PREDNISONE [Concomitant]
  6. SODIUM CHLORIDE [Concomitant]
  7. BACTRIM [Concomitant]
  8. TACROLIMUS [Concomitant]
  9. VALGANCICLOVIR [Concomitant]
  10. VANCOMYCIN [Concomitant]

REACTIONS (7)
  - Nausea [None]
  - Vomiting [None]
  - Diarrhoea [None]
  - Hypophagia [None]
  - Retching [None]
  - Weight decreased [None]
  - Drug intolerance [None]

NARRATIVE: CASE EVENT DATE: 20190326
